FAERS Safety Report 4428629-5 (Version None)
Quarter: 2004Q3

REPORT INFORMATION
  Report Type: 
  Country: None (occurrence: None)
  Receive Date: 20040818
  Receipt Date: 20030716
  Transmission Date: 20050211
  Serious: No
  Sender: FDA-Public Use
  Company Number: US-BRISTOL-MYERS SQUIBB COMPANY-12328357

PATIENT
  Sex: Female

DRUGS (1)
  1. TEQUIN [Suspect]
     Indication: SINUSITIS

REACTIONS (1)
  - DIZZINESS [None]
